FAERS Safety Report 8483422-1 (Version None)
Quarter: 2012Q3

REPORT INFORMATION
  Report Type: 
  Country: None (occurrence: None)
  Receive Date: 20120702
  Receipt Date: 20120627
  Transmission Date: 20120928
  Serious: Yes (Other)
  Sender: FDA-Public Use
  Company Number: CA-B.I. PHARMACEUTICALS,INC./RIDGEFIELD-2012-CN-01260CN

PATIENT
  Age: 85 Year
  Sex: Female

DRUGS (7)
  1. XALCOM [Concomitant]
     Dosage: 1 AT BEDTIME
  2. APO-FUROSEMIDE [Concomitant]
     Dosage: 40 MG
     Dates: start: 20120514
  3. PRADAXA [Suspect]
     Indication: ATRIAL FIBRILLATION
     Dosage: 220 MG
     Route: 048
     Dates: start: 20120312, end: 20120614
  4. SDZ-BISOPROLOL [Concomitant]
     Dosage: 5 MG
  5. APO-TRIAZIDE [Concomitant]
     Dosage: 50/25 MG
     Dates: end: 20120514
  6. PRADAXA [Suspect]
     Indication: ANTICOAGULANT THERAPY
  7. APO-AMLODIPINE [Concomitant]
     Dosage: 10 MG

REACTIONS (10)
  - DECREASED APPETITE [None]
  - CHEILITIS [None]
  - GLOSSODYNIA [None]
  - ORAL DISCOMFORT [None]
  - OROPHARYNGEAL PAIN [None]
  - ABDOMINAL DISCOMFORT [None]
  - DIARRHOEA [None]
  - DYSPHAGIA [None]
  - ANORECTAL DISCOMFORT [None]
  - FREQUENT BOWEL MOVEMENTS [None]
